FAERS Safety Report 18039474 (Version 1)
Quarter: 2020Q3

REPORT INFORMATION
  Report Type: Spontaneous
  Country: US (occurrence: US)
  Receive Date: 20200718
  Receipt Date: 20200718
  Transmission Date: 20201103
  Serious: Yes (Hospitalization, Other)
  Sender: FDA-Public Use
  Company Number: US-AUROBINDO-AUR-APL-2011-04997

PATIENT
  Age: 53 Year
  Sex: Male

DRUGS (2)
  1. PROCET [HYDROCODONE BITARTRATE/PARACETAMOL] [Suspect]
     Active Substance: ACETAMINOPHEN\HYDROCODONE BITARTRATE
     Indication: PRODUCT USED FOR UNKNOWN INDICATION
     Dosage: UNK
     Route: 065
  2. CARISOPRODOL TABLETS USP 350 MG [Suspect]
     Active Substance: CARISOPRODOL
     Indication: PRODUCT USED FOR UNKNOWN INDICATION
     Dosage: UNK
     Route: 065

REACTIONS (5)
  - Overdose [Unknown]
  - Miosis [Unknown]
  - Stupor [Unknown]
  - Suicide attempt [Unknown]
  - Mental status changes [Unknown]
